FAERS Safety Report 12111838 (Version 1)
Quarter: 2016Q1

REPORT INFORMATION
  Report Type: Report from Study
  Country: US (occurrence: US)
  Receive Date: 20160224
  Receipt Date: 20160224
  Transmission Date: 20160526
  Serious: Yes (Hospitalization)
  Sender: FDA-Public Use
  Company Number: US-UCBSA-2016006508

PATIENT
  Age: 66 Year
  Sex: Female

DRUGS (1)
  1. LACOSAMIDE [Suspect]
     Active Substance: LACOSAMIDE
     Indication: SEIZURE
     Dosage: UNK
     Dates: end: 201602

REACTIONS (1)
  - Seizure [Unknown]

NARRATIVE: CASE EVENT DATE: 201602
